FAERS Safety Report 23053860 (Version 1)
Quarter: 2023Q4

REPORT INFORMATION
  Report Type: Spontaneous
  Country: US (occurrence: US)
  Receive Date: 20231011
  Receipt Date: 20231011
  Transmission Date: 20240110
  Serious: Yes (Other)
  Sender: FDA-Public Use
  Company Number: US-COOPERSURGICAL, INC.-US-2023CPS003138

PATIENT
  Age: 47 Year
  Sex: Female
  Weight: 111.57 kg

DRUGS (1)
  1. PARAGARD T 380A [Suspect]
     Active Substance: COPPER
     Indication: Contraception
     Dosage: UNK
     Route: 015
     Dates: end: 20230404

REACTIONS (2)
  - Uterine leiomyoma [Unknown]
  - Device use issue [Unknown]

NARRATIVE: CASE EVENT DATE: 20230404
